FAERS Safety Report 4965318-2 (Version None)
Quarter: 2006Q2

REPORT INFORMATION
  Report Type: 
  Country: None (occurrence: None)
  Receive Date: 20060406
  Receipt Date: 20051031
  Transmission Date: 20061013
  Serious: Yes (Hospitalization)
  Sender: FDA-Public Use
  Company Number: US-MERCK-0511USA00080

PATIENT
  Age: 59 Year
  Sex: Female
  Weight: 70 kg

DRUGS (29)
  1. DIPHENHYDRAMINE HYDROCHLORIDE [Concomitant]
     Indication: HYPERSENSITIVITY
     Route: 065
  2. DARVOCET [Concomitant]
     Route: 065
  3. DIAZEPAM [Concomitant]
     Route: 065
  4. FOLIC ACID [Concomitant]
     Indication: MEDICAL DIET
     Route: 065
  5. FOSAMAX [Concomitant]
     Route: 065
  6. LORTAB [Concomitant]
     Indication: PAIN
     Route: 065
  7. FLURAZEPAM [Concomitant]
     Route: 065
  8. METHYLPREDNISOLONE [Concomitant]
     Route: 065
  9. VIOXX [Suspect]
     Indication: ARTHRITIS
     Route: 048
     Dates: start: 20000101, end: 20040901
  10. VIOXX [Suspect]
     Route: 048
     Dates: start: 20000101, end: 20040901
  11. VIOXX [Suspect]
     Indication: PROCEDURAL PAIN
     Route: 048
     Dates: start: 20000101, end: 20040901
  12. VIOXX [Suspect]
     Route: 048
     Dates: start: 20000101, end: 20040901
  13. PRAVACHOL [Concomitant]
     Indication: HYPERCHOLESTEROLAEMIA
     Route: 065
  14. ASPIRIN [Concomitant]
     Route: 065
  15. VITAMIN E [Concomitant]
     Route: 065
  16. NITROGLYCERIN [Suspect]
     Route: 060
  17. ALPRAZOLAM [Concomitant]
     Indication: ANXIETY
     Route: 065
  18. AMOXICILLIN [Concomitant]
     Indication: TOOTH INFECTION
     Route: 065
  19. ASTELIN [Concomitant]
     Indication: NASAL CONGESTION
     Route: 065
  20. PAXIL [Concomitant]
     Route: 065
  21. PROMETHAZINE [Concomitant]
     Route: 065
  22. PROTOCORT [Concomitant]
     Route: 065
  23. RELAFEN [Concomitant]
     Route: 065
  24. RETIN-A [Concomitant]
     Route: 065
  25. SULFAMETHOXAZOLE AND TRIMETHOPRIM [Concomitant]
     Route: 065
  26. TIZANIDINE HYDROCHLORIDE [Concomitant]
     Route: 065
  27. TRETINOIN [Concomitant]
     Route: 065
  28. ZYRTEC [Concomitant]
     Indication: HYPERSENSITIVITY
     Route: 065
  29. PRILOSEC [Concomitant]
     Route: 065

REACTIONS (15)
  - ABDOMINAL PAIN [None]
  - ACUTE MYOCARDIAL INFARCTION [None]
  - ANGINA UNSTABLE [None]
  - ANXIETY [None]
  - BREAST DISORDER [None]
  - CONTUSION [None]
  - CORONARY ARTERY STENOSIS [None]
  - DIZZINESS [None]
  - DRUG HYPERSENSITIVITY [None]
  - HIATUS HERNIA [None]
  - INTERVERTEBRAL DISC DEGENERATION [None]
  - OSTEOARTHRITIS [None]
  - SYNCOPE [None]
  - TENOSYNOVITIS [None]
  - WEIGHT DECREASED [None]
